FAERS Safety Report 18600276 (Version 10)
Quarter: 2022Q2

REPORT INFORMATION
  Report Type: Report from Study
  Country: US (occurrence: US)
  Receive Date: 20201210
  Receipt Date: 20220607
  Transmission Date: 20220721
  Serious: No
  Sender: FDA-Public Use
  Company Number: NVSC2020US327096

PATIENT
  Sex: Female

DRUGS (5)
  1. MAYZENT [Suspect]
     Active Substance: SIPONIMOD
     Indication: Multiple sclerosis
     Dosage: 2 MG, QD
     Route: 048
  2. MAYZENT [Suspect]
     Active Substance: SIPONIMOD
     Dosage: 2 MG, QOD
     Route: 048
  3. MAYZENT [Suspect]
     Active Substance: SIPONIMOD
     Route: 048
  4. MAYZENT [Suspect]
     Active Substance: SIPONIMOD
     Route: 048
  5. MAYZENT [Suspect]
     Active Substance: SIPONIMOD
     Route: 048

REACTIONS (10)
  - Fall [Unknown]
  - Arthritis [Unknown]
  - Gait disturbance [Unknown]
  - Lymphocyte count abnormal [Unknown]
  - Lymphocyte count decreased [Recovering/Resolving]
  - Hepatic enzyme increased [Unknown]
  - Asthenia [Unknown]
  - Central nervous system lesion [Unknown]
  - Inappropriate schedule of product administration [Unknown]
  - Product use issue [Unknown]
